FAERS Safety Report 10431658 (Version 1)
Quarter: 2014Q3

REPORT INFORMATION
  Report Type: Spontaneous
  Country: GB (occurrence: None)
  Receive Date: 20140903
  Receipt Date: 20140903
  Transmission Date: 20150326
  Serious: Yes (Death)
  Sender: FDA-Public Use
  Company Number: FK20103504

PATIENT
  Age: 31 Year
  Sex: Female

DRUGS (1)
  1. PROPOFOL (MANUFACTURER UNKNOWN) (PROPOFOL) (PROPOFOL) [Suspect]
     Active Substance: PROPOFOL
     Indication: MECHANICAL VENTILATION

REACTIONS (14)
  - Myoglobinuria [None]
  - Systemic inflammatory response syndrome [None]
  - Septic shock [None]
  - Hypoxia [None]
  - Rhabdomyolysis [None]
  - Haemodynamic instability [None]
  - Hydronephrosis [None]
  - Hyperkalaemia [None]
  - Multi-organ failure [None]
  - Propofol infusion syndrome [None]
  - Calculus ureteric [None]
  - Pyrexia [None]
  - Urosepsis [None]
  - Renal colic [None]
